FAERS Safety Report 11211543 (Version 4)
Quarter: 2015Q4

REPORT INFORMATION
  Report Type: Spontaneous
  Country: FI (occurrence: FI)
  Receive Date: 20150623
  Receipt Date: 20151006
  Transmission Date: 20160304
  Serious: Yes (Death, Other)
  Sender: FDA-Public Use
  Company Number: FI-ROCHE-1597429

PATIENT
  Age: 58 Year
  Sex: Male

DRUGS (10)
  1. MABTHERA [Suspect]
     Active Substance: RITUXIMAB
     Indication: CHRONIC INFLAMMATORY DEMYELINATING POLYRADICULONEUROPATHY
     Route: 042
     Dates: start: 20150309, end: 20150324
  2. TAVANIC [Concomitant]
     Active Substance: LEVOFLOXACIN
     Route: 042
  3. KLEXANE [Concomitant]
     Active Substance: ENOXAPARIN
     Route: 058
  4. IPRAXA [Concomitant]
     Route: 055
  5. PRIMASPAN [Concomitant]
     Route: 048
  6. MABTHERA [Suspect]
     Active Substance: RITUXIMAB
     Route: 042
     Dates: start: 20150324
  7. MUCOMYST [Concomitant]
     Active Substance: ACETYLCYSTEINE
     Route: 048
  8. MABTHERA [Suspect]
     Active Substance: RITUXIMAB
     Route: 042
     Dates: start: 20150331, end: 20150331
  9. OMEPRAZOLE. [Concomitant]
     Active Substance: OMEPRAZOLE
     Route: 048
  10. MERONEM [Concomitant]
     Active Substance: MEROPENEM
     Route: 042

REACTIONS (5)
  - Myocardial infarction [Fatal]
  - Urosepsis [Unknown]
  - Pneumonia [Fatal]
  - Deep vein thrombosis [Recovered/Resolved]
  - Respiratory failure [Fatal]

NARRATIVE: CASE EVENT DATE: 20150317
